FAERS Safety Report 7234487-6 (Version None)
Quarter: 2011Q1

REPORT INFORMATION
  Report Type: 
  Country: None (occurrence: None)
  Receive Date: 20110119
  Receipt Date: 20110114
  Transmission Date: 20110831
  Serious: Yes (Hospitalization)
  Sender: FDA-Public Use
  Company Number: US-ELI_LILLY_AND_COMPANY-US201101003626

PATIENT
  Sex: Male
  Weight: 123 kg

DRUGS (6)
  1. BYETTA [Suspect]
     Dosage: 10 UG, 2/D
     Route: 058
     Dates: end: 20110104
  2. VERAPAMIL [Concomitant]
     Indication: HYPERTENSION
     Dosage: 180 MG, UNK
     Dates: end: 20110104
  3. BYETTA [Suspect]
     Indication: TYPE 2 DIABETES MELLITUS
     Dosage: 5 UG, 2/D
     Route: 058
  4. BYETTA [Suspect]
     Dosage: 10 UG, 2/D
     Route: 058
     Dates: start: 20110108
  5. METFORMIN HCL [Concomitant]
     Indication: TYPE 2 DIABETES MELLITUS
  6. CLONIDINE [Concomitant]
     Indication: HYPERTENSION
     Dosage: 0.2 MG, UNK
     Dates: end: 20110104

REACTIONS (7)
  - ELECTROCARDIOGRAM ABNORMAL [None]
  - CHEST DISCOMFORT [None]
  - BLOOD GLUCOSE INCREASED [None]
  - CHEST PAIN [None]
  - WEIGHT DECREASED [None]
  - MUSCLE SPASMS [None]
  - BLOOD PRESSURE INCREASED [None]
